FAERS Safety Report 5763486-6 (Version None)
Quarter: 2008Q2

REPORT INFORMATION
  Report Type: 
  Country: None (occurrence: None)
  Receive Date: 20080529
  Receipt Date: 20071113
  Transmission Date: 20081010
  Serious: Yes (Disabling)
  Sender: FDA-Public Use
  Company Number: CIP07001686

PATIENT
  Age: 57 Year
  Sex: Female
  Weight: 46.7 kg

DRUGS (3)
  1. ACTONEL [Suspect]
     Indication: OSTEOPOROSIS
     Dosage: 35 MG ONCE WEEKLY, ORAL
     Route: 048
     Dates: start: 20060712, end: 20070221
  2. CITRICAL (CALCIUM CARBONATE) [Concomitant]
  3. MULTIVITAMIN (VITAMIN NOS) [Concomitant]

REACTIONS (4)
  - EYE PAIN [None]
  - IRITIS [None]
  - PHOTOPHOBIA [None]
  - SCLERAL DISCOLOURATION [None]
